FAERS Safety Report 9508738 (Version 1)
Quarter: 2013Q1

REPORT INFORMATION
  Report Type: Spontaneous
  Country: US (occurrence: None)
  Receive Date: 20130305
  Receipt Date: 20130305
  Transmission Date: 20140127
  Serious: No
  Sender: FDA-Public Use
  Company Number: 163-21880-12090763

PATIENT
  Age: 79 Year
  Sex: Male

DRUGS (1)
  1. REVLIMID (LENALIDOMIDE) (5 MILLIGRAMS, CAPSULES) [Suspect]
     Indication: MYELODYSPLASTIC SYNDROME
     Dosage: 5MG, 28 IN 28 D, PO
     Route: 048
     Dates: start: 20120815

REACTIONS (2)
  - Flatulence [None]
  - Hepatic enzyme increased [None]
